FAERS Safety Report 19999310 (Version 1)
Quarter: 2021Q4

REPORT INFORMATION
  Report Type: Spontaneous
  Country: US (occurrence: US)
  Receive Date: 20211026
  Receipt Date: 20211026
  Transmission Date: 20220303
  Serious: No
  Sender: FDA-Public Use
  Company Number: US-SANOFI-00820906

PATIENT
  Age: 70 Year
  Sex: Female

DRUGS (1)
  1. ALLEGRA ALLERGY [Suspect]
     Active Substance: FEXOFENADINE HYDROCHLORIDE
     Indication: Dermatitis allergic
     Dosage: 180 MG, QD
     Route: 065

REACTIONS (3)
  - Pruritus [Unknown]
  - Rash macular [Unknown]
  - Dry skin [Unknown]
